FAERS Safety Report 5158033-6 (Version None)
Quarter: 2006Q4

REPORT INFORMATION
  Report Type: 
  Country: None (occurrence: None)
  Receive Date: 20061116
  Receipt Date: 20061103
  Transmission Date: 20070319
  Serious: Yes (Other)
  Sender: FDA-Public Use
  Company Number: 2006136260

PATIENT
  Age: 90 Year
  Sex: Female
  Weight: 56.65 kg

DRUGS (3)
  1. LYRICA [Suspect]
     Indication: NEUROPATHY PERIPHERAL
     Dosage: 100 MG (50 MG, 2 IN 1 D), ORAL
     Route: 048
     Dates: start: 20060619, end: 20061001
  2. BENDROFLUMETHIAZIDE                (BENDROFLUMETHIAZIDE) [Concomitant]
  3. HYDROCORTISONE [Concomitant]

REACTIONS (2)
  - ABDOMINAL DISTENSION [None]
  - JOINT SWELLING [None]
